FAERS Safety Report 7288810-7 (Version None)
Quarter: 2011Q1

REPORT INFORMATION
  Report Type: 
  Country: None (occurrence: None)
  Receive Date: 20110211
  Receipt Date: 20110204
  Transmission Date: 20110831
  Serious: Yes (Other)
  Sender: FDA-Public Use
  Company Number: GB-MERCK-1102GBR00037

PATIENT
  Age: 35 Year
  Sex: Male

DRUGS (1)
  1. SINGULAIR [Suspect]
     Indication: ASTHMA
     Route: 048

REACTIONS (8)
  - LUNG INFILTRATION [None]
  - LEUKOCYTOCLASTIC VASCULITIS [None]
  - ALLERGIC GRANULOMATOUS ANGIITIS [None]
  - PYREXIA [None]
  - SKIN HYPOPLASIA [None]
  - EOSINOPHILIA [None]
  - ASTHMA [None]
  - SINUSITIS [None]
